FAERS Safety Report 6629646-7 (Version None)
Quarter: 2010Q1

REPORT INFORMATION
  Report Type: 
  Country: None (occurrence: None)
  Receive Date: 20100310
  Receipt Date: 20100310
  Transmission Date: 20100710
  Serious: Yes (Disabling, Other)
  Sender: FDA-Public Use
  Company Number: None

PATIENT
  Age: 70 Year
  Sex: Female
  Weight: 92.0802 kg

DRUGS (2)
  1. CIPROFLOXACIN [Suspect]
     Indication: URINARY TRACT INFECTION
     Dosage: 500 MG 1 EVERY 12 HOURS MOUTH
     Route: 048
     Dates: start: 20091206
  2. CIPROFLOXACIN [Suspect]
     Indication: URINARY TRACT INFECTION
     Dosage: 500 MG 1/2 EVERY 12 HOURS MOUTH
     Route: 048
     Dates: start: 20100220

REACTIONS (7)
  - ARTHRALGIA [None]
  - ARTHROPATHY [None]
  - ASTHENIA [None]
  - BLADDER DISORDER [None]
  - BLADDER PAIN [None]
  - MUSCULAR WEAKNESS [None]
  - TENDON DISORDER [None]
